FAERS Safety Report 16819342 (Version 1)
Quarter: 2019Q3

REPORT INFORMATION
  Report Type: Report from Study
  Country: EG (occurrence: EG)
  Receive Date: 20190917
  Receipt Date: 20190917
  Transmission Date: 20191005
  Serious: Yes (Other)
  Sender: FDA-Public Use
  Company Number: PHHY2019EG216079

PATIENT
  Age: 32 Year
  Sex: Female

DRUGS (2)
  1. MIDODRINE [Concomitant]
     Active Substance: MIDODRINE
     Indication: PRODUCT USED FOR UNKNOWN INDICATION
     Dosage: 5 G, QD
     Route: 065
  2. GILENYA [Suspect]
     Active Substance: FINGOLIMOD HYDROCHLORIDE
     Indication: MULTIPLE SCLEROSIS
     Dosage: 0.5 MG, QD
     Route: 065
     Dates: start: 201901

REACTIONS (2)
  - Hypotension [Not Recovered/Not Resolved]
  - Arrhythmia [Not Recovered/Not Resolved]

NARRATIVE: CASE EVENT DATE: 201909
